FAERS Safety Report 18675647 (Version 1)
Quarter: 2020Q4

REPORT INFORMATION
  Report Type: Spontaneous
  Country: FR (occurrence: FR)
  Receive Date: 20201229
  Receipt Date: 20201229
  Transmission Date: 20210114
  Serious: Yes (Hospitalization)
  Sender: FDA-Public Use
  Company Number: FR-PFIZER INC-2020507029

PATIENT
  Age: 83 Year
  Sex: Female

DRUGS (12)
  1. NIVESTIM [Suspect]
     Active Substance: FILGRASTIM
     Dosage: 1 DF; ACCORDING LABORATORY TEST
     Route: 058
     Dates: start: 20200820
  2. PARACETAMOL [Suspect]
     Active Substance: ACETAMINOPHEN
     Indication: PREMEDICATION
     Dosage: 3 G, 1X/DAY
     Route: 048
  3. LANSOPRAZOLE. [Concomitant]
     Active Substance: LANSOPRAZOLE
     Indication: PREMEDICATION
     Dosage: 15 MG, 1X/DAY
     Route: 048
     Dates: end: 20201109
  4. RITUXIMAB. [Suspect]
     Active Substance: RITUXIMAB
     Indication: B-CELL LYMPHOMA
     Dosage: 1400 MG, CYCLIC
     Route: 058
     Dates: start: 20200918, end: 20201106
  5. PREDNISONE. [Concomitant]
     Active Substance: PREDNISONE
     Indication: CHEMOTHERAPY SIDE EFFECT PROPHYLAXIS
     Dosage: 360 MG, CYCLIC
     Route: 048
     Dates: end: 20201109
  6. ZELITREX [Suspect]
     Active Substance: VALACYCLOVIR HYDROCHLORIDE
     Dosage: 1000 MG, 1X/DAY
     Route: 048
     Dates: start: 20200820
  7. BINOCRIT [Suspect]
     Active Substance: ERYTHROPOIETIN
     Dosage: 1 DF, ACCORDING TO LABORATORY TEST
     Route: 051
     Dates: start: 20200820
  8. PAROXETINE HYDROCHLORIDE. [Suspect]
     Active Substance: PAROXETINE HYDROCHLORIDE
     Dosage: 20 MG, 1X/DAY
     Route: 048
     Dates: start: 20200909, end: 20201203
  9. CLAMOXYL [AMOXICILLIN TRIHYDRATE] [Suspect]
     Active Substance: AMOXICILLIN
     Dosage: 1000 MG, 1X/DAY
     Route: 048
     Dates: start: 20200820, end: 20201203
  10. CYCLOPHOSPHAMIDE. [Concomitant]
     Active Substance: CYCLOPHOSPHAMIDE
     Indication: B-CELL LYMPHOMA
     Dosage: 750 MG, CYCLIC
     Route: 041
     Dates: start: 20200918, end: 20201108
  11. DEXCHLORPHENIRAMINE MALEATE. [Concomitant]
     Active Substance: DEXCHLORPHENIRAMINE MALEATE
     Indication: PREMEDICATION
     Dosage: UNK
     Route: 051
     Dates: end: 20201106
  12. ETOPOSIDE. [Concomitant]
     Active Substance: ETOPOSIDE
     Indication: B-CELL LYMPHOMA
     Dosage: 450 MG, CYCLIC
     Route: 041
     Dates: start: 20200918, end: 20201108

REACTIONS (4)
  - Facial paralysis [Recovering/Resolving]
  - Electroencephalogram abnormal [Recovering/Resolving]
  - Aphasia [Recovering/Resolving]
  - Seizure [Recovering/Resolving]

NARRATIVE: CASE EVENT DATE: 20200930
